FAERS Safety Report 5826428-0 (Version None)
Quarter: 2008Q3

REPORT INFORMATION
  Report Type: 
  Country: None (occurrence: None)
  Receive Date: 20080724
  Receipt Date: 20080709
  Transmission Date: 20090109
  Serious: Yes (Hospitalization)
  Sender: FDA-Public Use
  Company Number: 8034533

PATIENT
  Age: 90 Year
  Sex: Female

DRUGS (1)
  1. KEPPRA [Suspect]
     Dosage: 2500 MG /D IV
     Route: 042
     Dates: start: 20080601, end: 20080601

REACTIONS (5)
  - COMA [None]
  - DEHYDRATION [None]
  - DRUG ADMINISTRATION ERROR [None]
  - OVERDOSE [None]
  - SOMNOLENCE [None]
